FAERS Safety Report 7326081-3 (Version None)
Quarter: 2011Q1

REPORT INFORMATION
  Report Type: 
  Country: None (occurrence: None)
  Receive Date: 20110218
  Receipt Date: 20110210
  Transmission Date: 20110831
  Serious: Yes (Other)
  Sender: FDA-Public Use
  Company Number: JPI-P-013874

PATIENT
  Age: 60 Year
  Sex: Female
  Weight: 81.6475 kg

DRUGS (11)
  1. L-METHYLFOLATE [Suspect]
     Indication: AMNESIA
     Dosage: 15 M (15 MG,1 IN 1 D),ORAL
     Route: 048
     Dates: start: 20110201
  2. CLONAZEPAM [Concomitant]
  3. ROPINIROLE [Concomitant]
  4. XYREM [Suspect]
     Indication: FATIGUE
     Dosage: 6 GM (3 GM,2 IN 1 D),ORAL ; 7.5 GM (3.75 GM,2 IN 1 D),ORAL ; 6 GM (3 GM,2 IN 1 D),ORAL
     Route: 048
     Dates: start: 20100101
  5. XYREM [Suspect]
     Indication: CATAPLEXY
     Dosage: 6 GM (3 GM,2 IN 1 D),ORAL ; 7.5 GM (3.75 GM,2 IN 1 D),ORAL ; 6 GM (3 GM,2 IN 1 D),ORAL
     Route: 048
     Dates: start: 20100101
  6. XYREM [Suspect]
     Indication: FATIGUE
     Dosage: 6 GM (3 GM,2 IN 1 D),ORAL ; 7.5 GM (3.75 GM,2 IN 1 D),ORAL ; 6 GM (3 GM,2 IN 1 D),ORAL
     Route: 048
     Dates: start: 20110201
  7. XYREM [Suspect]
     Indication: CATAPLEXY
     Dosage: 6 GM (3 GM,2 IN 1 D),ORAL ; 7.5 GM (3.75 GM,2 IN 1 D),ORAL ; 6 GM (3 GM,2 IN 1 D),ORAL
     Route: 048
     Dates: start: 20110201
  8. XYREM [Suspect]
     Indication: FATIGUE
     Dosage: 6 GM (3 GM,2 IN 1 D),ORAL ; 7.5 GM (3.75 GM,2 IN 1 D),ORAL ; 6 GM (3 GM,2 IN 1 D),ORAL
     Route: 048
     Dates: start: 20071101
  9. XYREM [Suspect]
     Indication: CATAPLEXY
     Dosage: 6 GM (3 GM,2 IN 1 D),ORAL ; 7.5 GM (3.75 GM,2 IN 1 D),ORAL ; 6 GM (3 GM,2 IN 1 D),ORAL
     Route: 048
     Dates: start: 20071101
  10. EZETIMIBE AND SIMVASTATIN [Concomitant]
  11. CARBAMAZEPINE [Suspect]
     Indication: DEPRESSION
     Dosage: 200 MG (100 MG,2 IN 1 D)
     Dates: start: 20110125

REACTIONS (5)
  - AMNESIA [None]
  - FEELING ABNORMAL [None]
  - HYPERSOMNIA [None]
  - DISTURBANCE IN ATTENTION [None]
  - DEPRESSION [None]
